FAERS Safety Report 6663798-8 (Version None)
Quarter: 2010Q2

REPORT INFORMATION
  Report Type: 
  Country: None (occurrence: None)
  Receive Date: 20100401
  Receipt Date: 20100322
  Transmission Date: 20101027
  Serious: Yes (Hospitalization, Other)
  Sender: FDA-Public Use
  Company Number: US-JNJFOC-20100306376

PATIENT
  Sex: Female
  Weight: 54.43 kg

DRUGS (7)
  1. REMICADE [Suspect]
     Indication: RHEUMATOID ARTHRITIS
     Route: 042
     Dates: start: 20060101
  2. VICODIN [Concomitant]
     Indication: PAIN
  3. CELEBREX [Concomitant]
     Indication: RHEUMATOID ARTHRITIS
  4. CELEBREX [Concomitant]
     Indication: PAIN
  5. PLAQUENIL [Concomitant]
     Indication: DRUG USE FOR UNKNOWN INDICATION
  6. LOPERAMIDE [Concomitant]
     Indication: DRUG USE FOR UNKNOWN INDICATION
  7. XANAX [Concomitant]
     Indication: SLEEP DISORDER

REACTIONS (5)
  - INFUSION RELATED REACTION [None]
  - INFUSION SITE SWELLING [None]
  - PAIN IN EXTREMITY [None]
  - PNEUMONIA [None]
  - TRANSFUSION [None]
